FAERS Safety Report 15338479 (Version 1)
Quarter: 2018Q3

REPORT INFORMATION
  Report Type: Spontaneous
  Country: US (occurrence: US)
  Receive Date: 20180831
  Receipt Date: 20180831
  Transmission Date: 20181010
  Serious: Yes (Hospitalization, Other)
  Sender: FDA-Public Use
  Company Number: US-ASTRAZENECA-2018SF08642

PATIENT
  Sex: Male

DRUGS (8)
  1. METOPROLOL SUCCINATE. [Suspect]
     Active Substance: METOPROLOL SUCCINATE
     Indication: HYPERTENSION
     Dosage: 25.0MG UNKNOWN
     Route: 048
  2. BRILINTA [Suspect]
     Active Substance: TICAGRELOR
     Indication: STENT PLACEMENT
     Route: 048
     Dates: start: 20180823
  3. BRILINTA [Suspect]
     Active Substance: TICAGRELOR
     Indication: STENT PLACEMENT
     Route: 048
     Dates: start: 201710, end: 201806
  4. ATORVASTATIN [Concomitant]
     Active Substance: ATORVASTATIN
  5. HCTZ [Concomitant]
     Active Substance: HYDROCHLOROTHIAZIDE
  6. TIMOLOL. [Concomitant]
     Active Substance: TIMOLOL
     Dosage: DAILY
     Route: 047
  7. LATANOPROST. [Concomitant]
     Active Substance: LATANOPROST
     Dosage: AT NIGHT
     Route: 047
  8. ASPIRIN. [Concomitant]
     Active Substance: ASPIRIN

REACTIONS (12)
  - Astigmatism [Unknown]
  - Lung disorder [Unknown]
  - Glaucoma [Not Recovered/Not Resolved]
  - Contusion [Unknown]
  - Somnolence [Recovered/Resolved]
  - Chest pain [Unknown]
  - Arterial occlusive disease [Recovered/Resolved]
  - Epistaxis [Recovered/Resolved]
  - Oesophagitis [Unknown]
  - Dysphagia [Unknown]
  - Mucosal inflammation [Unknown]
  - Anxiety [Not Recovered/Not Resolved]

NARRATIVE: CASE EVENT DATE: 201710
